FAERS Safety Report 21120935 (Version 3)
Quarter: 2023Q2

REPORT INFORMATION
  Report Type: Spontaneous
  Country: US (occurrence: US)
  Receive Date: 20220722
  Receipt Date: 20230404
  Transmission Date: 20230721
  Serious: No
  Sender: FDA-Public Use
  Company Number: US-LUPIN PHARMACEUTICALS INC.-2022-09662

PATIENT

DRUGS (1)
  1. ALBUTEROL SULFATE [Suspect]
     Active Substance: ALBUTEROL SULFATE
     Indication: Wheezing
     Dosage: UNK UNK, QID (1 PUFF EVERY 6 HOURS AS NEEDED)
     Dates: start: 20220713

REACTIONS (5)
  - Incorrect dose administered by device [Unknown]
  - Device deposit issue [Unknown]
  - Device malfunction [Unknown]
  - Wrong technique in product usage process [Unknown]
  - No adverse event [Unknown]
